FAERS Safety Report 17883635 (Version 1)
Quarter: 2020Q2

REPORT INFORMATION
  Report Type: Report from Study
  Country: None (occurrence: US)
  Receive Date: 20200611
  Receipt Date: 20200611
  Transmission Date: 20200714
  Serious: Yes (Other)
  Sender: FDA-Public Use
  Company Number: US-ABBVIE-20K-163-3435976-00

PATIENT
  Sex: Female

DRUGS (1)
  1. VENCLEXTA [Suspect]
     Active Substance: VENETOCLAX
     Indication: ACUTE MYELOID LEUKAEMIA
     Route: 048
     Dates: start: 20191118

REACTIONS (13)
  - Basophil count increased [Recovering/Resolving]
  - Blast cell count increased [Recovering/Resolving]
  - Mean cell haemoglobin [Recovering/Resolving]
  - Neutrophil count decreased [Recovering/Resolving]
  - Red blood cell count decreased [Recovering/Resolving]
  - Abdominal distension [Recovering/Resolving]
  - Myelodysplastic syndrome [Recovering/Resolving]
  - Lymphocyte count decreased [Recovering/Resolving]
  - Haemoglobin decreased [Recovering/Resolving]
  - Haematocrit decreased [Recovering/Resolving]
  - Refractory cytopenia with unilineage dysplasia [Recovering/Resolving]
  - Red cell distribution width increased [Recovering/Resolving]
  - White blood cell count decreased [Recovering/Resolving]
